FAERS Safety Report 7274765-8 (Version None)
Quarter: 2011Q1

REPORT INFORMATION
  Report Type: 
  Country: None (occurrence: None)
  Receive Date: 20110204
  Receipt Date: 20110126
  Transmission Date: 20110831
  Serious: Yes (Life-Threatening, Hospitalization)
  Sender: FDA-Public Use
  Company Number: US-JNJFOC-20080500558

PATIENT
  Sex: Female
  Weight: 99.79 kg

DRUGS (2)
  1. INFLIXIMAB [Suspect]
     Indication: PSORIASIS
     Route: 042
     Dates: start: 20070702
  2. INFLIXIMAB [Suspect]
     Indication: PSORIATIC ARTHROPATHY
     Route: 042
     Dates: start: 20070702

REACTIONS (5)
  - UTERINE DISORDER [None]
  - VAGINAL HAEMORRHAGE [None]
  - OVARIAN CANCER [None]
  - ABDOMINAL PAIN [None]
  - PRECANCEROUS CELLS PRESENT [None]
